FAERS Safety Report 6722832-7 (Version None)
Quarter: 2010Q2

REPORT INFORMATION
  Report Type: 
  Country: None (occurrence: None)
  Receive Date: 20100512
  Receipt Date: 20100512
  Transmission Date: 20101027
  Serious: Yes (Hospitalization)
  Sender: FDA-Public Use
  Company Number: None

PATIENT
  Age: 48 Year
  Sex: Female
  Weight: 86.1834 kg

DRUGS (2)
  1. SEROQUEL [Suspect]
  2. SEROQUEL XR [Suspect]

REACTIONS (7)
  - ABNORMAL BEHAVIOUR [None]
  - AMNESIA [None]
  - LOSS OF CONSCIOUSNESS [None]
  - RETINAL DETACHMENT [None]
  - ROAD TRAFFIC ACCIDENT [None]
  - UNRESPONSIVE TO STIMULI [None]
  - VISUAL ACUITY REDUCED [None]
